FAERS Safety Report 9229014 (Version 3)
Quarter: 2013Q2

REPORT INFORMATION
  Report Type: Report from Study
  Country: US (occurrence: US)
  Receive Date: 20130412
  Receipt Date: 20130508
  Transmission Date: 20140414
  Serious: Yes (Death, Life-Threatening, Hospitalization, Other)
  Sender: FDA-Public Use
  Company Number: US-BRISTOL-MYERS SQUIBB COMPANY-17353665

PATIENT
  Age: 84 Year
  Sex: Male

DRUGS (14)
  1. BMS936558 [Suspect]
     Indication: NON-SMALL CELL LUNG CANCER
     Dosage: INTERRUPTED ON 17DEC2012(LAST DOSE)?NO OF COURSE:07(TOTAL)
     Route: 042
     Dates: start: 20120801
  2. CARBOPLATIN [Suspect]
     Indication: NON-SMALL CELL LUNG CANCER
     Dosage: INTERRUPTED ON 15OCT2012(LAST DOSE)?NO OF COURSE:04(TOTAL)?1 DF:AUC6,AUC5
     Route: 042
     Dates: start: 20120801
  3. PACLITAXEL [Suspect]
     Indication: NON-SMALL CELL LUNG CANCER
     Dosage: INTERRUPTED ON 15OCT2012(LAST DOSE)?NO OF COURSE:04(TOTAL)?1DF:ARMC5:200MG/M2;100MG/M2
     Route: 042
     Dates: start: 20120801
  4. TRADJENTA [Concomitant]
  5. LIPITOR [Concomitant]
  6. XALATAN [Concomitant]
     Dosage: 1 DF: 0.5 PERCENT OU BID-TID
  7. LYRICA [Concomitant]
     Dosage: DOSAGE:BID TID
  8. LOVAZA [Concomitant]
  9. VITAMIN B12 [Concomitant]
  10. MULTIVITAMIN [Concomitant]
     Dosage: 1 DF: 1 TABS
  11. VITAMIN D3 [Concomitant]
  12. METOPROLOL [Concomitant]
  13. EXFORGE [Concomitant]
     Dosage: 1 DF:5/160 UNIT NOS
  14. ASPIRIN [Concomitant]

REACTIONS (3)
  - Malignant neoplasm progression [Fatal]
  - Pneumonitis [Not Recovered/Not Resolved]
  - Dyspnoea [Not Recovered/Not Resolved]
